FAERS Safety Report 7495988-9 (Version None)
Quarter: 2011Q2

REPORT INFORMATION
  Report Type: 
  Country: None (occurrence: None)
  Receive Date: 20110523
  Receipt Date: 20110511
  Transmission Date: 20111010
  Serious: Yes (Hospitalization)
  Sender: FDA-Public Use
  Company Number: AU-JNJFOC-20110405016

PATIENT
  Sex: Male
  Weight: 84.1 kg

DRUGS (12)
  1. LEUPROLIDE ACETATE [Concomitant]
     Indication: PROSTATE CANCER
     Route: 030
     Dates: start: 20081022
  2. ABIRATERONE ACETATE [Suspect]
     Route: 048
     Dates: start: 20081022
  3. PREDNISONE [Suspect]
     Route: 048
     Dates: start: 20081021
  4. CHOLECALCIFEROL [Concomitant]
     Indication: VITAMIN D DEFICIENCY
     Route: 048
     Dates: start: 20110201
  5. POTASSIUM CHLORIDE [Concomitant]
     Indication: HYPOKALAEMIA
     Route: 048
     Dates: start: 20100209
  6. LEUPROLIDE ACETATE [Concomitant]
     Indication: HORMONE THERAPY
     Route: 065
     Dates: start: 20040101
  7. PREDNISONE [Suspect]
     Indication: PROSTATE CANCER METASTATIC
     Route: 048
     Dates: start: 20101214
  8. FOSINOPRIL SODIUM [Concomitant]
     Indication: HYPERTENSION
     Dosage: 20/12.5 MG
     Route: 048
     Dates: start: 20090729
  9. NYSTATIN [Concomitant]
     Indication: ORAL CANDIDIASIS
     Dosage: AS NEEDED
     Route: 048
     Dates: start: 20101001
  10. IRON COMPLEX [Concomitant]
     Indication: FATIGUE
     Route: 048
     Dates: start: 20100830
  11. ABIRATERONE ACETATE [Suspect]
     Indication: PROSTATE CANCER METASTATIC
     Dosage: OPEN LABEL
     Route: 048
     Dates: start: 20101214
  12. FELODIPINE [Concomitant]
     Indication: HYPERTENSION
     Route: 048
     Dates: start: 20021001

REACTIONS (2)
  - HAEMATURIA [None]
  - URINARY RETENTION [None]
